FAERS Safety Report 12619966 (Version 2)
Quarter: 2016Q3

REPORT INFORMATION
  Report Type: Spontaneous
  Country: PT (occurrence: PT)
  Receive Date: 20160803
  Receipt Date: 20160906
  Transmission Date: 20161109
  Serious: Yes (Disabling)
  Sender: FDA-Public Use
  Company Number: PT-CONCORDIA PHARMACEUTICALS INC.-CO-ZO-PT-2016-081

PATIENT
  Sex: Male
  Weight: 61 kg

DRUGS (3)
  1. ZONEGRAN [Suspect]
     Active Substance: ZONISAMIDE
     Indication: EPILEPSY
     Route: 048
     Dates: end: 2016
  2. LEVETIRACETAM TEVA [Suspect]
     Active Substance: LEVETIRACETAM
     Indication: EPILEPSY
     Route: 048
  3. ZONEGRAN [Suspect]
     Active Substance: ZONISAMIDE
     Dosage: INCREASED TO THE HIGHEST DOSE
     Route: 048
     Dates: start: 2016

REACTIONS (9)
  - Intentional self-injury [Not Recovered/Not Resolved]
  - Disturbance in attention [Not Recovered/Not Resolved]
  - Syncope [Not Recovered/Not Resolved]
  - Myalgia [Not Recovered/Not Resolved]
  - Alopecia [Not Recovered/Not Resolved]
  - Memory impairment [Not Recovered/Not Resolved]
  - Drug ineffective [Unknown]
  - Epilepsy [Not Recovered/Not Resolved]
  - Dizziness [Not Recovered/Not Resolved]

NARRATIVE: CASE EVENT DATE: 2016
